FAERS Safety Report 14977900 (Version 1)
Quarter: 2018Q2

REPORT INFORMATION
  Report Type: Spontaneous
  Country: US (occurrence: US)
  Receive Date: 20180515
  Receipt Date: 20180515
  Transmission Date: 20180711
  Serious: Yes (Hospitalization)
  Sender: FDA-Public Use
  Company Number: None

PATIENT
  Age: 75 Year
  Sex: Male
  Weight: 77.8 kg

DRUGS (2)
  1. LEUPROLIDE ACETATE. [Suspect]
     Active Substance: LEUPROLIDE ACETATE
     Dates: end: 20171107
  2. CASODEX [Suspect]
     Active Substance: BICALUTAMIDE
     Dates: end: 20160927

REACTIONS (7)
  - Ocular hyperaemia [None]
  - Choroidal detachment [None]
  - Eyelid oedema [None]
  - Visual acuity reduced [None]
  - Periorbital cellulitis [None]
  - Eye infection [None]
  - Retinitis [None]

NARRATIVE: CASE EVENT DATE: 20180130
